FAERS Safety Report 6268876-3 (Version None)
Quarter: 2009Q3

REPORT INFORMATION
  Report Type: 
  Country: None (occurrence: None)
  Receive Date: 20090715
  Receipt Date: 20090703
  Transmission Date: 20100115
  Serious: Yes (Hospitalization)
  Sender: FDA-Public Use
  Company Number: PHHY2009MX27320

PATIENT
  Age: 87 Year
  Sex: Male

DRUGS (4)
  1. DIOVAN [Suspect]
     Indication: HYPERTENSION
     Dosage: 0.5 DF (80 MG)/ DAY
     Route: 048
     Dates: start: 20061001
  2. DIOVAN [Suspect]
     Dosage: 0.25 DF (80 MG)/ DAY
     Route: 048
     Dates: start: 20070901
  3. DIOVAN [Suspect]
     Dosage: 1 DF (80 MG)/ DAY
     Route: 048
     Dates: start: 20090622, end: 20090628
  4. DIOVAN [Suspect]
     Dosage: 0.25 DF (80 MG)/ DAY
     Route: 048
     Dates: start: 20090629

REACTIONS (4)
  - HYPERTENSION [None]
  - HYPOTENSION [None]
  - LIP NEOPLASM MALIGNANT STAGE UNSPECIFIED [None]
  - SURGERY [None]
